FAERS Safety Report 17146407 (Version 1)
Quarter: 2019Q4

REPORT INFORMATION
  Report Type: Spontaneous
  Country: SE (occurrence: SE)
  Receive Date: 20191212
  Receipt Date: 20191212
  Transmission Date: 20200122
  Serious: Yes (Hospitalization)
  Sender: FDA-Public Use
  Company Number: SE-TEVA-2019-SE-1149717

PATIENT
  Age: 27 Year
  Sex: Male

DRUGS (3)
  1. DULOXETINE. [Suspect]
     Active Substance: DULOXETINE
     Dosage: 420 MG
     Route: 048
     Dates: start: 20181128, end: 20181128
  2. OXASCAND [Suspect]
     Active Substance: OXAZEPAM
     Dosage: 105 MG
     Route: 048
     Dates: start: 20181128, end: 20181128
  3. LERGIGAN (PROMETHAZINE HYDROCHLORIDE) [Suspect]
     Active Substance: PROMETHAZINE HYDROCHLORIDE
     Dosage: 1050 MG
     Route: 048
     Dates: start: 20181128, end: 20181128

REACTIONS (4)
  - Intentional overdose [Unknown]
  - Mydriasis [Unknown]
  - Tachycardia [Unknown]
  - Intentional self-injury [Unknown]

NARRATIVE: CASE EVENT DATE: 20181128
